FAERS Safety Report 17998528 (Version 1)
Quarter: 2020Q3

REPORT INFORMATION
  Report Type: Spontaneous
  Country: US (occurrence: US)
  Receive Date: 20200708
  Receipt Date: 20200708
  Transmission Date: 20201103
  Serious: Yes (Hospitalization)
  Sender: FDA-Public Use
  Company Number: None

PATIENT
  Age: 57 Year
  Sex: Female

DRUGS (2)
  1. ACTEMRA [Suspect]
     Active Substance: TOCILIZUMAB
     Indication: RHEUMATOID ARTHRITIS
     Route: 058
     Dates: start: 20180328
  2. SERTRALINE TAB 25MG [Concomitant]
     Dates: start: 20200512

REACTIONS (4)
  - Gait disturbance [None]
  - Pain in extremity [None]
  - Peripheral swelling [None]
  - Therapy interrupted [None]

NARRATIVE: CASE EVENT DATE: 20200701
